FAERS Safety Report 18423460 (Version 5)
Quarter: 2020Q4

REPORT INFORMATION
  Report Type: Report from Study
  Country: BR (occurrence: BR)
  Receive Date: 20201023
  Receipt Date: 20201123
  Transmission Date: 20210114
  Serious: Yes (Hospitalization, Other)
  Sender: FDA-Public Use
  Company Number: BR-BRISTOL-MYERS SQUIBB COMPANY-BMS-2020-080842

PATIENT
  Age: 46 Year
  Sex: Male

DRUGS (11)
  1. PREGABALINE [Concomitant]
     Active Substance: PREGABALIN
     Indication: BACK PAIN
     Dosage: 75 MILLIGRAM, BID
     Route: 065
     Dates: start: 20200629
  2. PREGABALINE [Concomitant]
     Active Substance: PREGABALIN
     Indication: NECK PAIN
  3. TRAMADOL. [Concomitant]
     Active Substance: TRAMADOL
     Dosage: 100 MILLIGRAM, BID
     Route: 048
     Dates: start: 20200831
  4. TRAMADOL. [Concomitant]
     Active Substance: TRAMADOL
     Indication: PAIN
     Dosage: 100 MILLIGRAM, BID
     Route: 065
     Dates: start: 20200629
  5. PREGABALINE [Concomitant]
     Active Substance: PREGABALIN
     Indication: NEURALGIA
     Dosage: 75 MILLIGRAM, BID
     Route: 048
     Dates: start: 20200831
  6. PREGABALINE [Concomitant]
     Active Substance: PREGABALIN
     Indication: PAIN
  7. BEMPEGALDESLEUKIN [Suspect]
     Active Substance: BEMPEGALDESLEUKIN
     Indication: RENAL CELL CARCINOMA
     Dosage: 0.006 MILLIGRAM/KILOGRAM, Q3WK
     Route: 042
     Dates: start: 20200316
  8. NIVOLUMAB [Suspect]
     Active Substance: NIVOLUMAB
     Indication: RENAL CELL CARCINOMA
     Dosage: 360 MILLIGRAM, Q3WK
     Route: 042
     Dates: start: 20200316
  9. LEVOTHYROXIN [Concomitant]
     Active Substance: LEVOTHYROXINE
     Indication: HYPOTHYROIDISM
     Dosage: 75 MICROGRAM, QD
     Route: 048
     Dates: start: 20200904
  10. PREGABALINE [Concomitant]
     Active Substance: PREGABALIN
     Indication: NEURALGIA
  11. PREDNISOLONE. [Concomitant]
     Active Substance: PREDNISOLONE
     Indication: BACK PAIN
     Dosage: 0.5 MILLIGRAM, QD
     Route: 065
     Dates: start: 20200821

REACTIONS (2)
  - Influenza like illness [Recovered/Resolved]
  - Tonsillitis bacterial [Recovered/Resolved]

NARRATIVE: CASE EVENT DATE: 20200923
